FAERS Safety Report 20077827 (Version 1)
Quarter: 2021Q4

REPORT INFORMATION
  Report Type: Spontaneous
  Country: FR (occurrence: FR)
  Receive Date: 20211116
  Receipt Date: 20211116
  Transmission Date: 20220303
  Serious: Yes (Other)
  Sender: FDA-Public Use
  Company Number: FR-FRESENIUS KABI-FK202108976

PATIENT
  Age: 32 Year

DRUGS (5)
  1. CYTARABINE [Suspect]
     Active Substance: CYTARABINE
     Indication: Breast cancer
     Dosage: UNK
     Route: 065
  2. EPIRUBICIN [Suspect]
     Active Substance: EPIRUBICIN
     Indication: Breast cancer
     Dosage: UNK
     Route: 065
  3. PACLITAXEL [Suspect]
     Active Substance: PACLITAXEL
     Indication: Breast cancer
     Dosage: 100MG/16.7ML
     Route: 065
     Dates: start: 20210622, end: 20210817
  4. CYTARABINE [Suspect]
     Active Substance: CYTARABINE
     Indication: Breast cancer
     Dosage: UNK
  5. EPIRUBICIN [Suspect]
     Active Substance: EPIRUBICIN
     Indication: Breast cancer
     Dosage: UNK

REACTIONS (6)
  - Capillary leak syndrome [Unknown]
  - Eczema [Unknown]
  - Xeroderma [Unknown]
  - Fluid retention [Unknown]
  - Dyspnoea exertional [Unknown]
  - Oedema [Unknown]

NARRATIVE: CASE EVENT DATE: 20210803
